FAERS Safety Report 19485716 (Version 2)
Quarter: 2021Q3

REPORT INFORMATION
  Report Type: Spontaneous
  Country: AU (occurrence: AU)
  Receive Date: 20210702
  Receipt Date: 20210709
  Transmission Date: 20211014
  Serious: Yes (Death, Other)
  Sender: FDA-Public Use
  Company Number: AU-ALKEM LABORATORIES LIMITED-AU-ALKEM-2021-04051

PATIENT
  Sex: Male

DRUGS (15)
  1. GANCICLOVIR. [Suspect]
     Active Substance: GANCICLOVIR
     Indication: CYTOMEGALOVIRUS INFECTION
     Dosage: UNK
     Route: 042
     Dates: start: 1996, end: 1996
  2. VALGANCICLOVIR. [Suspect]
     Active Substance: VALGANCICLOVIR
     Indication: ANTIVIRAL PROPHYLAXIS
     Dosage: UNK
     Route: 065
     Dates: start: 2013, end: 2014
  3. ACICLOVIR [Suspect]
     Active Substance: ACYCLOVIR
     Indication: ANTIVIRAL PROPHYLAXIS
  4. MYCOPHENOLATE MOFETIL. [Suspect]
     Active Substance: MYCOPHENOLATE MOFETIL
     Dosage: 250 MILLIGRAM, QD
     Route: 065
     Dates: start: 1996, end: 2011
  5. ACICLOVIR [Suspect]
     Active Substance: ACYCLOVIR
     Indication: CYTOMEGALOVIRUS INFECTION
     Dosage: 800 MILLIGRAM (EVERY 8 HR)
     Route: 048
     Dates: start: 1996, end: 1996
  6. GANCICLOVIR. [Suspect]
     Active Substance: GANCICLOVIR
     Dosage: UNK
     Route: 016
     Dates: start: 2014, end: 2014
  7. MYCOPHENOLATE MOFETIL. [Suspect]
     Active Substance: MYCOPHENOLATE MOFETIL
     Dosage: 250 MILLIGRAM, BID
     Route: 065
     Dates: start: 2011, end: 2013
  8. AZATHIOPRINE. [Suspect]
     Active Substance: AZATHIOPRINE
     Indication: IMMUNOSUPPRESSANT DRUG THERAPY
     Dosage: UNK
     Route: 065
     Dates: start: 201311, end: 2014
  9. GANCICLOVIR. [Suspect]
     Active Substance: GANCICLOVIR
     Dosage: UNK
     Route: 016
     Dates: start: 2012
  10. PREDNISOLONE. [Suspect]
     Active Substance: PREDNISOLONE
     Indication: IMMUNOSUPPRESSANT DRUG THERAPY
     Dosage: 5 MILLIGRAM, QD
     Route: 065
     Dates: start: 1996, end: 2018
  11. VALGANCICLOVIR. [Suspect]
     Active Substance: VALGANCICLOVIR
     Indication: CYTOMEGALOVIRUS INFECTION
     Dosage: UNK
     Route: 065
     Dates: start: 2011, end: 2012
  12. VALGANCICLOVIR. [Suspect]
     Active Substance: VALGANCICLOVIR
     Dosage: 450 MILLIGRAM (EVERY 48 HOUR)
     Route: 065
     Dates: start: 2015
  13. MYCOPHENOLATE MOFETIL. [Suspect]
     Active Substance: MYCOPHENOLATE MOFETIL
     Indication: IMMUNOSUPPRESSANT DRUG THERAPY
     Dosage: 500 MILLIGRAM, QD
     Route: 065
     Dates: start: 1996, end: 2011
  14. VALGANCICLOVIR. [Suspect]
     Active Substance: VALGANCICLOVIR
     Dosage: 450 MILLIGRAM, QD
     Route: 065
     Dates: start: 2014
  15. MYCOPHENOLATE MOFETIL. [Suspect]
     Active Substance: MYCOPHENOLATE MOFETIL
     Dosage: 360 MILLIGRAM, BID
     Route: 065
     Dates: start: 1996, end: 2016

REACTIONS (16)
  - Oesophageal ulcer [Fatal]
  - Cytomegalovirus colitis [Recovered/Resolved]
  - Drug resistance [Fatal]
  - Large intestinal ulcer [Recovered/Resolved]
  - Gastritis [Recovered/Resolved]
  - Fistula of small intestine [Recovered/Resolved]
  - Cytomegalovirus gastrointestinal ulcer [Fatal]
  - Duodenitis [Recovered/Resolved]
  - Weight decreased [Fatal]
  - Cytomegalovirus oesophagitis [Fatal]
  - Haematemesis [Fatal]
  - Pneumothorax [Fatal]
  - Drug resistance [Unknown]
  - Oesophagopleural fistula [Fatal]
  - Respiratory disorder [Fatal]
  - Malnutrition [Fatal]

NARRATIVE: CASE EVENT DATE: 2011
